FAERS Safety Report 25461971 (Version 1)
Quarter: 2025Q2

REPORT INFORMATION
  Report Type: Spontaneous
  Country: ES (occurrence: ES)
  Receive Date: 20250620
  Receipt Date: 20250620
  Transmission Date: 20250716
  Serious: Yes (Hospitalization, Other)
  Sender: SANOFI AVENTIS
  Company Number: None

PATIENT
  Age: 77 Year
  Sex: Male

DRUGS (3)
  1. RIFATER [Suspect]
     Active Substance: ISONIAZID\PYRAZINAMIDE\RIFAMPIN
     Indication: Bone tuberculosis
     Dosage: 6 DF, QD
     Route: 048
     Dates: start: 20250421, end: 20250505
  2. PYRIDOXINE HYDROCHLORIDE [Concomitant]
     Active Substance: PYRIDOXINE HYDROCHLORIDE
     Indication: Bone tuberculosis
     Dosage: 1 DF, QOD (1 TABLET ON MONDAY, WEDNESDAY AND FRIDAY)
     Route: 048
     Dates: start: 20250421
  3. MYAMBUTOL [Concomitant]
     Active Substance: ETHAMBUTOL HYDROCHLORIDE
     Indication: Bone tuberculosis
     Dosage: 1600 MG, QD
     Route: 048
     Dates: start: 20250421

REACTIONS (4)
  - Rash maculo-papular [Recovered/Resolved]
  - Hepatitis cholestatic [Recovered/Resolved]
  - Tubulointerstitial nephritis [Recovered/Resolved]
  - Acute kidney injury [Recovered/Resolved]

NARRATIVE: CASE EVENT DATE: 20250421
